FAERS Safety Report 9691523 (Version 1)
Quarter: 2013Q4

REPORT INFORMATION
  Report Type: Report from Study
  Country: AU (occurrence: AU)
  Receive Date: 20131115
  Receipt Date: 20131115
  Transmission Date: 20140711
  Serious: Yes (Death)
  Sender: FDA-Public Use
  Company Number: AU-ASTRAZENECA-2013SE83703

PATIENT
  Age: 85 Year
  Sex: Male

DRUGS (1)
  1. ZOLADEX IMPLANT [Suspect]
     Indication: PROSTATE CANCER
     Dosage: EVERY THREE MONTHS
     Route: 058
     Dates: start: 20111201

REACTIONS (1)
  - Death [Fatal]
